FAERS Safety Report 25502185 (Version 1)
Quarter: 2025Q3

REPORT INFORMATION
  Report Type: Other
  Country: CA (occurrence: CA)
  Receive Date: 20250702
  Receipt Date: 20250702
  Transmission Date: 20251021
  Serious: Yes (Hospitalization, Other)
  Sender: APOTEX
  Company Number: CA-PGRTD-001135632

PATIENT
  Age: 90 Year
  Sex: Female

DRUGS (4)
  1. LEVOFLOXACIN [Suspect]
     Active Substance: LEVOFLOXACIN
     Indication: Anti-infective therapy
     Route: 048
  2. FUROSEMIDE [Concomitant]
     Active Substance: FUROSEMIDE
     Route: 065
  3. EDOXABAN TOSYLATE [Concomitant]
     Active Substance: EDOXABAN TOSYLATE
     Route: 065
  4. INFLIXIMAB [Concomitant]
     Active Substance: INFLIXIMAB
     Route: 065

REACTIONS (9)
  - Blood creatinine increased [Unknown]
  - Glomerular filtration rate decreased [Unknown]
  - Blood magnesium decreased [Unknown]
  - Seizure [Unknown]
  - Neurological symptom [Unknown]
  - Depressed level of consciousness [Unknown]
  - Confusional state [Unknown]
  - Electrocardiogram QT prolonged [Unknown]
  - Hallucinations, mixed [Unknown]
